FAERS Safety Report 5355465-8 (Version None)
Quarter: 2007Q2

REPORT INFORMATION
  Report Type: 
  Country: None (occurrence: None)
  Receive Date: 20070530
  Receipt Date: 20061005
  Transmission Date: 20071010
  Serious: Yes (Hospitalization)
  Sender: FDA-Public Use
  Company Number: US200609002114

PATIENT
  Sex: Female
  Weight: 90.7 kg

DRUGS (5)
  1. ZYPREXA [Suspect]
     Dosage: 30 MG
     Dates: start: 20030801, end: 20041201
  2. QUETIAPINE FUMARATE [Concomitant]
  3. ZIPRASIDONE HCL [Concomitant]
  4. DIVALPROEX SODIUM [Concomitant]
  5. BUPROPION HCL [Concomitant]

REACTIONS (5)
  - BLOOD TRIGLYCERIDES INCREASED [None]
  - DIABETES MELLITUS [None]
  - DIABETIC KETOACIDOSIS [None]
  - METABOLIC DISORDER [None]
  - PRESCRIBED OVERDOSE [None]
